FAERS Safety Report 5606100-2 (Version None)
Quarter: 2008Q1

REPORT INFORMATION
  Report Type: 
  Country: None (occurrence: None)
  Receive Date: 20080123
  Receipt Date: 20080123
  Transmission Date: 20080703
  Serious: No
  Sender: FDA-Public Use
  Company Number: None

PATIENT
  Age: 17 Year
  Sex: Male

DRUGS (2)
  1. GEODON [Suspect]
     Indication: AGITATION
     Dosage: 20MG ONCE IM
     Route: 030
     Dates: start: 20071031, end: 20071031
  2. GEODON [Suspect]
     Indication: SCHIZOPHRENIA
     Dosage: 20MG ONCE IM
     Route: 030
     Dates: start: 20071031, end: 20071031

REACTIONS (20)
  - ABNORMAL BEHAVIOUR [None]
  - AGITATION [None]
  - AMMONIA INCREASED [None]
  - APNOEIC ATTACK [None]
  - ASPARTATE AMINOTRANSFERASE INCREASED [None]
  - BLOOD BILIRUBIN INCREASED [None]
  - BLOOD CREATININE INCREASED [None]
  - BLOOD GLUCOSE INCREASED [None]
  - BLOOD SODIUM DECREASED [None]
  - BLOOD UREA INCREASED [None]
  - BRADYCARDIA [None]
  - CARDIAC ARREST [None]
  - DISSEMINATED INTRAVASCULAR COAGULATION [None]
  - HAEMATOCRIT INCREASED [None]
  - HAEMOGLOBIN INCREASED [None]
  - LIPASE INCREASED [None]
  - NAUSEA [None]
  - PLATELET COUNT DECREASED [None]
  - SINUS BRADYCARDIA [None]
  - VOMITING [None]
